FAERS Safety Report 10404076 (Version 1)
Quarter: 2014Q1

REPORT INFORMATION
  Report Type: Spontaneous
  Country: US (occurrence: None)
  Receive Date: 20130815
  Receipt Date: 20130815
  Transmission Date: 20141002
  Serious: Yes (Death, Hospitalization, Other)
  Sender: FDA-Public Use
  Company Number: ADR-2012-01324

PATIENT
  Age: 40 Year
  Sex: Female

DRUGS (1)
  1. LIORESAL [Suspect]
     Indication: MUSCLE SPASTICITY

REACTIONS (7)
  - Underdose [None]
  - Drug withdrawal syndrome [None]
  - Tremor [None]
  - Pruritus [None]
  - Therapeutic response decreased [None]
  - Musculoskeletal stiffness [None]
  - Pyrexia [None]
